FAERS Safety Report 6208970-6 (Version None)
Quarter: 2009Q2

REPORT INFORMATION
  Report Type: 
  Country: None (occurrence: None)
  Receive Date: 20090522
  Receipt Date: 20090205
  Transmission Date: 20091009
  Serious: No
  Sender: FDA-Public Use
  Company Number: 8042613

PATIENT
  Age: 48 Year
  Sex: Female
  Weight: 56.8 kg

DRUGS (5)
  1. CIMZIA [Suspect]
     Indication: CROHN'S DISEASE
     Dosage: 400 MG SC
     Route: 058
     Dates: start: 20090204
  2. TYLENOL (CAPLET) [Concomitant]
  3. BENADRYL [Concomitant]
  4. PREDNISONE [Concomitant]
  5. ASPIRIN [Concomitant]

REACTIONS (1)
  - INJECTION SITE REACTION [None]
